FAERS Safety Report 17357372 (Version 1)
Quarter: 2020Q1

REPORT INFORMATION
  Report Type: Spontaneous
  Country: DK (occurrence: DK)
  Receive Date: 20200131
  Receipt Date: 20200131
  Transmission Date: 20200409
  Serious: Yes (Disabling)
  Sender: FDA-Public Use
  Company Number: DK-MYLANLABS-2020M1011382

PATIENT
  Age: 70 Year
  Sex: Female

DRUGS (1)
  1. LAMOTRIGINE. [Suspect]
     Active Substance: LAMOTRIGINE
     Indication: EPILEPSY
     Dosage: STARTDOSIS 100 MG DAGLIGT. NEDTRAPPET TIL 20 MG DAGLIG 23MAR2017
     Route: 048
     Dates: start: 20050914

REACTIONS (4)
  - Pulmonary function test decreased [Not Recovered/Not Resolved]
  - Chronic respiratory disease [Not Recovered/Not Resolved]
  - Exercise tolerance decreased [Not Recovered/Not Resolved]
  - Dyspnoea [Not Recovered/Not Resolved]

NARRATIVE: CASE EVENT DATE: 201509
